FAERS Safety Report 7927913-8 (Version None)
Quarter: 2011Q4

REPORT INFORMATION
  Report Type: 
  Country: None (occurrence: None)
  Receive Date: 20111118
  Receipt Date: 20111117
  Transmission Date: 20120403
  Serious: Yes (Death)
  Sender: FDA-Public Use
  Company Number: DE-B.I. PHARMACEUTICALS,INC./RIDGEFIELD-2011-DE-06213DE

PATIENT
  Sex: Female

DRUGS (8)
  1. TOREM 10MG [Concomitant]
     Indication: CARDIAC FAILURE
     Dosage: 2 ANZ
     Route: 048
  2. SIMVASTATIN 10 [Concomitant]
     Indication: HYPERCHOLESTEROLAEMIA
     Dosage: 1 ANZ
     Route: 048
  3. RAMIPRIL [Concomitant]
     Indication: HYPERTENSION
     Dosage: 1 ANZ
     Route: 048
  4. MELPERONSAFT 25MG 30ML [Concomitant]
     Indication: INSOMNIA
     Dosage: 30ML 0-0-1
     Route: 048
  5. AMLODIPIN 5MG [Concomitant]
     Indication: HYPERTENSION
     Dosage: 1 ANZ
     Route: 048
  6. BISOPROLOL 5MG [Concomitant]
     Indication: ATRIAL FIBRILLATION
     Dosage: 0.5 ANZ
     Route: 048
  7. HCT 25MG [Concomitant]
     Indication: CARDIAC FAILURE
     Dosage: 0.5 ANZ
     Route: 048
  8. PRADAXA [Suspect]
     Indication: ATRIAL FIBRILLATION
     Dosage: 220 MG
     Dates: start: 20110920, end: 20111020

REACTIONS (3)
  - RENAL FAILURE ACUTE [None]
  - UROSEPSIS [None]
  - HAEMORRHAGE [None]
